FAERS Safety Report 24794168 (Version 1)
Quarter: 2024Q4

REPORT INFORMATION
  Report Type: Spontaneous
  Country: US (occurrence: US)
  Receive Date: 20241231
  Receipt Date: 20241231
  Transmission Date: 20250115
  Serious: Yes (Other)
  Sender: BAYER HEALTHCARE PHARMACEUTICALS INC.
  Company Number: US-BAYER-2024A182356

PATIENT
  Sex: Male

DRUGS (4)
  1. DAROLUTAMIDE [Suspect]
     Active Substance: DAROLUTAMIDE
     Indication: Prostate cancer
     Dosage: UNK
  2. PYLARIFY [Concomitant]
     Active Substance: PIFLUFOLASTAT F-18
     Dosage: UNK
  3. ORGOVYX [Concomitant]
     Active Substance: RELUGOLIX
     Dosage: UNK
  4. FIRMAGON [Concomitant]
     Active Substance: DEGARELIX ACETATE
     Dosage: UNK

REACTIONS (1)
  - Tongue neoplasm malignant stage unspecified [None]
